FAERS Safety Report 17236441 (Version 1)
Quarter: 2020Q1

REPORT INFORMATION
  Report Type: Spontaneous
  Country: PL (occurrence: PL)
  Receive Date: 20200106
  Receipt Date: 20200106
  Transmission Date: 20200409
  Serious: Yes (Other)
  Sender: FDA-Public Use
  Company Number: PL-AMGEN-POLNI2019217421

PATIENT
  Age: 73 Year
  Sex: Female
  Weight: 58 kg

DRUGS (9)
  1. PERTUZUMAB. [Suspect]
     Active Substance: PERTUZUMAB
     Indication: HER-2 POSITIVE BREAST CANCER
     Route: 042
  2. ONDANSETRONUM [Concomitant]
     Active Substance: ONDANSETRON
     Dosage: 8 MILLIGRAM
     Route: 042
     Dates: start: 20190507, end: 20190724
  3. RANITIDINE. [Concomitant]
     Active Substance: RANITIDINE
     Dosage: 50 MILLIGRAM
     Route: 042
     Dates: start: 20190507, end: 20190724
  4. TRASTUZUMAB. [Suspect]
     Active Substance: TRASTUZUMAB
     Indication: HER-2 POSITIVE BREAST CANCER
     Route: 041
  5. PACLITAXEL. [Suspect]
     Active Substance: PACLITAXEL
     Indication: HER-2 POSITIVE BREAST CANCER
     Dosage: 125 MILLIGRAM, QWK
     Route: 042
     Dates: start: 20190507, end: 20190724
  6. DEXAVEN [Concomitant]
     Active Substance: DEXAMETHASONE
     Dosage: 10 MILLIGRAM
     Route: 042
     Dates: start: 20190507, end: 20190724
  7. TRASTUZUMAB;VORHYALURONIDASE ALFA [Suspect]
     Active Substance: HYALURONIDASE (HUMAN RECOMBINANT)\TRASTUZUMAB
     Indication: HER-2 POSITIVE BREAST CANCER
     Dosage: 600 MILLIGRAM, Q3WK
     Route: 058
     Dates: start: 20190507
  8. TARKA [Concomitant]
     Active Substance: TRANDOLAPRIL\VERAPAMIL HYDROCHLORIDE
     Dosage: 180 MILLIGRAM, QD
     Route: 048
     Dates: start: 20110101
  9. CLEMASTINUM [CLEMASTINE] [Concomitant]
     Dosage: 2 MILLIGRAM
     Route: 042
     Dates: start: 20190507, end: 20190724

REACTIONS (2)
  - Off label use [Unknown]
  - Polyneuropathy [Not Recovered/Not Resolved]

NARRATIVE: CASE EVENT DATE: 20190724
